FAERS Safety Report 8373050-0 (Version None)
Quarter: 2012Q2

REPORT INFORMATION
  Report Type: 
  Country: None (occurrence: None)
  Receive Date: 20120521
  Receipt Date: 20120514
  Transmission Date: 20120825
  Serious: Yes (Hospitalization, Other)
  Sender: FDA-Public Use
  Company Number: US-INCYTE CORPORATION-2012IN000798

PATIENT
  Sex: Female

DRUGS (6)
  1. PREDNISONE [Concomitant]
  2. LAMISIL [Concomitant]
  3. JAKAFI [Suspect]
     Indication: MYELOFIBROSIS
     Dosage: 20 MG, BID
     Route: 048
     Dates: start: 20111101, end: 20120101
  4. WARFARIN SODIUM [Concomitant]
  5. NAPROSYN [Concomitant]
  6. HYDROXYUREA [Concomitant]

REACTIONS (3)
  - THROMBOSIS [None]
  - RENAL FAILURE [None]
  - SPLENECTOMY [None]
